FAERS Safety Report 5628540-8 (Version None)
Quarter: 2008Q1

REPORT INFORMATION
  Report Type: 
  Country: None (occurrence: None)
  Receive Date: 20080215
  Receipt Date: 20080206
  Transmission Date: 20080703
  Serious: Yes (Hospitalization)
  Sender: FDA-Public Use
  Company Number: JP-PFIZER INC-2008011564

PATIENT
  Sex: Female

DRUGS (7)
  1. IRINOTECAN HCL [Suspect]
     Indication: RECTAL CANCER
     Route: 042
     Dates: start: 20070214, end: 20070529
  2. IRINOTECAN HCL [Suspect]
     Route: 042
     Dates: start: 20070625, end: 20080107
  3. FLUOROURACIL [Suspect]
     Indication: RECTAL CANCER
     Dosage: TEXT:450 MG/BODY BOLUS (450 MG)-FREQ:INTERMITTENT
     Dates: start: 20070214, end: 20070529
  4. FLUOROURACIL [Suspect]
     Dosage: TEXT:2775 MG/BODY (2775 MG)-FREQ:INTERMITTENT
     Route: 042
     Dates: start: 20070214, end: 20070531
  5. FLUOROURACIL [Suspect]
     Dosage: TEXT:225 MG/BODY BOLUS (225 MG)-FREQ:INTERMITTENT
     Dates: start: 20070625, end: 20080107
  6. FLUOROURACIL [Suspect]
     Dosage: TEXT:2800 MG/BODY (2800 MG)-FREQ:INTERMITTENT
     Route: 042
     Dates: start: 20070625, end: 20080109
  7. CALCIUM FOLINATE [Suspect]
     Indication: RECTAL CANCER
     Dosage: TEXT:225 MG/BODY (225 MG)-FREQ:INTERMITTENT
     Route: 042
     Dates: start: 20070214, end: 20080107

REACTIONS (1)
  - ASTHMA [None]
